FAERS Safety Report 5133004-4 (Version None)
Quarter: 2006Q4

REPORT INFORMATION
  Report Type: 
  Country: None (occurrence: None)
  Receive Date: 20061017
  Receipt Date: 20061005
  Transmission Date: 20070319
  Serious: Yes (Other)
  Sender: FDA-Public Use
  Company Number: GXKR2006GB06171

PATIENT
  Sex: Female

DRUGS (2)
  1. TEMAZEPAM [Suspect]
     Dosage: 45-50 MG, QD, ORAL
     Route: 048
  2. ZOPICLONE (ZOPICLONE) [Concomitant]

REACTIONS (5)
  - CHEST DISCOMFORT [None]
  - DRUG DEPENDENCE [None]
  - INTENTIONAL OVERDOSE [None]
  - MIDDLE INSOMNIA [None]
  - NERVOUSNESS [None]
